FAERS Safety Report 24614912 (Version 2)
Quarter: 2025Q3

REPORT INFORMATION
  Report Type: Report from Study
  Country: US (occurrence: US)
  Receive Date: 20241113
  Receipt Date: 20250802
  Transmission Date: 20251020
  Serious: Yes (Hospitalization, Other)
  Sender: ALEXION PHARMACEUTICALS
  Company Number: US-AstraZeneca-CH-00730265A

PATIENT
  Sex: Female
  Weight: 80.285 kg

DRUGS (1)
  1. SELUMETINIB [Suspect]
     Active Substance: SELUMETINIB
     Indication: Neurofibromatosis
     Dosage: 45 MILLIGRAM, BID
     Dates: start: 20220902

REACTIONS (2)
  - Abdominal pain upper [Unknown]
  - Haematochezia [Unknown]
